FAERS Safety Report 6662124-8 (Version None)
Quarter: 2010Q1

REPORT INFORMATION
  Report Type: 
  Country: None (occurrence: None)
  Receive Date: 20100331
  Receipt Date: 20100319
  Transmission Date: 20100710
  Serious: Yes (Hospitalization, Disabling)
  Sender: FDA-Public Use
  Company Number: BE-PFIZER INC-2010021812

PATIENT
  Age: 53 Year
  Sex: Male
  Weight: 91 kg

DRUGS (14)
  1. BLINDED *NO SUBJECT DRUG [Suspect]
     Indication: PROSTATE CANCER
     Dosage: UNK
     Route: 048
     Dates: start: 20091022, end: 20100215
  2. BLINDED *PLACEBO [Suspect]
     Indication: PROSTATE CANCER
     Dosage: UNK
     Route: 048
     Dates: start: 20091022, end: 20100215
  3. BLINDED SUNITINIB MALATE [Suspect]
     Indication: PROSTATE CANCER
     Dosage: UNK
     Route: 048
     Dates: start: 20091022, end: 20100215
  4. PREDNISONE [Suspect]
     Indication: PROSTATE CANCER
     Dosage: 5 MG, 2X/DAY
     Route: 048
     Dates: start: 20091022, end: 20100217
  5. LYRICA [Concomitant]
     Indication: BONE PAIN
     Dosage: 150 MG, 3X/DAY
     Route: 048
     Dates: start: 20091106
  6. PALLADONE [Concomitant]
     Indication: BONE PAIN
     Dosage: 96 MG, 2X/DAY
     Route: 048
     Dates: start: 20091106
  7. VOLTAREN [Concomitant]
     Indication: BONE PAIN
     Dosage: 75 MG, 2X/DAY
     Route: 048
     Dates: start: 20091106
  8. TEMESTA [Concomitant]
     Indication: INSOMNIA
     Dosage: 1 MG, 1X/DAY
     Route: 048
     Dates: start: 20091030
  9. RANITIDINE [Concomitant]
     Indication: OESOPHAGITIS
     Dosage: 150 MG, 2X/DAY
     Route: 048
     Dates: start: 20100112
  10. DECAPEPTYL [Concomitant]
     Indication: PROSTATE CANCER
     Dosage: UNK
     Route: 058
     Dates: start: 20080901
  11. FERRO-GRADUMET [Concomitant]
     Indication: ANAEMIA
     Dosage: UNK
     Route: 048
     Dates: start: 20030101
  12. ZOMETA [Concomitant]
     Indication: METASTASES TO BONE
     Dosage: 4 MG, EVERY 3 WEEKS
     Route: 042
     Dates: start: 20080901
  13. MOVICOL [Concomitant]
     Indication: CONSTIPATION
     Dosage: 13.2 MG, AS NEEDED
     Route: 048
     Dates: start: 20091103
  14. CIPRALEX [Concomitant]
     Indication: DEPRESSION
     Dosage: 10 MG, 1X/DAY
     Route: 048
     Dates: start: 20091103

REACTIONS (1)
  - ANAEMIA [None]
